FAERS Safety Report 19994844 (Version 1)
Quarter: 2021Q4

REPORT INFORMATION
  Report Type: Spontaneous
  Country: FR (occurrence: FR)
  Receive Date: 20211026
  Receipt Date: 20211026
  Transmission Date: 20220303
  Serious: Yes (Hospitalization, Other)
  Sender: FDA-Public Use
  Company Number: FR-ABBVIE-21K-056-4129615-00

PATIENT
  Age: 5 Month
  Sex: Male
  Weight: 2.66 kg

DRUGS (4)
  1. VALPROATE SODIUM [Suspect]
     Active Substance: VALPROATE SODIUM
     Indication: Maternal exposure timing unspecified
     Route: 064
  2. GABAPENTIN [Suspect]
     Active Substance: GABAPENTIN
     Indication: Maternal exposure timing unspecified
     Route: 064
  3. PHENOBARBITAL [Suspect]
     Active Substance: PHENOBARBITAL
     Indication: Maternal exposure timing unspecified
     Route: 064
  4. FOLIC ACID [Concomitant]
     Active Substance: FOLIC ACID
     Indication: Maternal exposure timing unspecified
     Dates: start: 19990705

REACTIONS (64)
  - Bronchiolitis [Unknown]
  - Behaviour disorder [Unknown]
  - Dysphagia [Unknown]
  - Vomiting [Unknown]
  - Hypospadias [Unknown]
  - Foetal anticonvulsant syndrome [Unknown]
  - Anxiety [Unknown]
  - Camptodactyly congenital [Unknown]
  - Decreased appetite [Unknown]
  - Gastrooesophageal reflux disease [Unknown]
  - Strabismus [Unknown]
  - Cytogenetic abnormality [Unknown]
  - Brain stem auditory evoked response abnormal [Unknown]
  - Reproductive tract hypoplasia, male [Unknown]
  - Hypotony maculopathy [Unknown]
  - Congenital eye disorder [Unknown]
  - Micropenis [Unknown]
  - Autism spectrum disorder [Unknown]
  - Low set ears [Unknown]
  - Communication disorder [Unknown]
  - Talipes [Unknown]
  - Craniosynostosis [Unknown]
  - Muscle spasticity [Unknown]
  - Kyphosis [Unknown]
  - Weight gain poor [Unknown]
  - Dysmorphism [Unknown]
  - Fine motor skill dysfunction [Unknown]
  - Diplegia [Unknown]
  - Somnolence [Unknown]
  - Personality disorder [Unknown]
  - Stereotypy [Unknown]
  - Dysmorphism [Not Recovered/Not Resolved]
  - Body mass index decreased [Unknown]
  - Cognitive disorder [Unknown]
  - Asterixis [Unknown]
  - Intentional self-injury [Unknown]
  - Decreased interest [Unknown]
  - Prognathism [Unknown]
  - Enuresis [Unknown]
  - Abnormal palmar/plantar creases [Unknown]
  - Lordosis [Unknown]
  - Tooth disorder [Unknown]
  - Pyelonephritis [Unknown]
  - Poor sucking reflex [Unknown]
  - Ear infection [Unknown]
  - Scaphocephaly [Unknown]
  - Muscle atrophy [Unknown]
  - Growth retardation [Unknown]
  - Weight decrease neonatal [Unknown]
  - Feeding disorder [Unknown]
  - Spinal instability [Unknown]
  - Sleep disorder [Unknown]
  - Abnormal labour affecting foetus [Unknown]
  - Hypertelorism [Unknown]
  - Hypotonia neonatal [Unknown]
  - Scoliosis [Unknown]
  - Motor developmental delay [Unknown]
  - Developmental delay [Unknown]
  - Psychomotor retardation [Unknown]
  - Language disorder [Unknown]
  - Mental disorder [Unknown]
  - Hypoglycaemia neonatal [Unknown]
  - Malnutrition [Unknown]
  - Foetal exposure during pregnancy [Unknown]

NARRATIVE: CASE EVENT DATE: 20000901
